FAERS Safety Report 10861196 (Version 1)
Quarter: 2015Q1

REPORT INFORMATION
  Report Type: Spontaneous
  Country: US (occurrence: None)
  Receive Date: 20150218
  Receipt Date: 20150218
  Transmission Date: 20150721
  Serious: Yes (Hospitalization)
  Sender: FDA-Public Use
  Company Number: None

PATIENT
  Age: 74 Year
  Sex: Female
  Weight: 90.3 kg

DRUGS (17)
  1. FUROSEMIDE. [Concomitant]
     Active Substance: FUROSEMIDE
  2. DOCUSATE [Concomitant]
     Active Substance: DOCUSATE
  3. PROBIOTIC [Concomitant]
     Active Substance: PROBIOTICS NOS
  4. VALSARTAN. [Concomitant]
     Active Substance: VALSARTAN
  5. METHOCARBAMOL. [Concomitant]
     Active Substance: METHOCARBAMOL
  6. XARELTO [Suspect]
     Active Substance: RIVAROXABAN
     Indication: ATRIAL FIBRILLATION
     Route: 048
     Dates: start: 20140114, end: 20140514
  7. SIMVASTATIN. [Concomitant]
     Active Substance: SIMVASTATIN
  8. CELEBREX [Concomitant]
     Active Substance: CELECOXIB
  9. ESCITALOPRAM [Concomitant]
     Active Substance: ESCITALOPRAM OXALATE
  10. FENTANYL. [Concomitant]
     Active Substance: FENTANYL
  11. COREG [Concomitant]
     Active Substance: CARVEDILOL
  12. ASA [Concomitant]
     Active Substance: ASPIRIN
  13. DIGOXIN. [Concomitant]
     Active Substance: DIGOXIN
  14. FUROSEMIDE. [Concomitant]
     Active Substance: FUROSEMIDE
  15. SPIRONOLACTONE. [Concomitant]
     Active Substance: SPIRONOLACTONE
  16. ADVAIR HFA [Concomitant]
     Active Substance: FLUTICASONE PROPIONATE\SALMETEROL XINAFOATE
  17. MULTIVITAMIN [Concomitant]
     Active Substance: VITAMINS

REACTIONS (2)
  - Gastric ulcer haemorrhage [None]
  - Haematochezia [None]

NARRATIVE: CASE EVENT DATE: 20140514
